FAERS Safety Report 9235751 (Version 3)
Quarter: 2014Q3

REPORT INFORMATION
  Report Type: Spontaneous
  Country: US (occurrence: US)
  Receive Date: 20130417
  Receipt Date: 20140908
  Transmission Date: 20150326
  Serious: Yes (Life-Threatening, Hospitalization, Disabling)
  Sender: FDA-Public Use
  Company Number: US-BAYER-2013-048247

PATIENT
  Age: 39 Year
  Sex: Female
  Weight: 115.65 kg

DRUGS (9)
  1. SPIRONOLACTONE. [Concomitant]
     Active Substance: SPIRONOLACTONE
     Route: 048
  2. RANITIDINE [Concomitant]
     Active Substance: RANITIDINE\RANITIDINE HYDROCHLORIDE
     Route: 048
  3. YASMIN [Suspect]
     Active Substance: DROSPIRENONE\ETHINYL ESTRADIOL
  4. LISINOPRIL. [Concomitant]
     Active Substance: LISINOPRIL
     Route: 048
  5. MOTRIN [Concomitant]
     Active Substance: IBUPROFEN
  6. METFORMIN [Concomitant]
     Active Substance: METFORMIN HYDROCHLORIDE
     Route: 048
  7. OCELLA [Suspect]
     Active Substance: DROSPIRENONE\ETHINYL ESTRADIOL
     Indication: MENSTRUAL CYCLE MANAGEMENT
     Dosage: UNK
     Dates: start: 2012, end: 201205
  8. VICODIN [Concomitant]
     Active Substance: ACETAMINOPHEN\HYDROCODONE BITARTRATE
  9. LEVOTHYROXIN [Concomitant]
     Active Substance: LEVOTHYROXINE
     Route: 048

REACTIONS (13)
  - Anxiety [None]
  - Pain in extremity [Recovering/Resolving]
  - Thrombophlebitis superficial [Recovering/Resolving]
  - Activities of daily living impaired [Recovering/Resolving]
  - Injury [Recovering/Resolving]
  - Deep vein thrombosis [None]
  - Pain [None]
  - Peripheral swelling [Recovering/Resolving]
  - Venous valve ruptured [Recovering/Resolving]
  - Anhedonia [Recovering/Resolving]
  - Emotional distress [None]
  - Pain [Recovering/Resolving]
  - General physical health deterioration [Recovering/Resolving]

NARRATIVE: CASE EVENT DATE: 201205
